FAERS Safety Report 9588038 (Version 5)
Quarter: 2014Q3

REPORT INFORMATION
  Report Type: Report from Study
  Country: JP (occurrence: JP)
  Receive Date: 20131003
  Receipt Date: 20140709
  Transmission Date: 20150326
  Serious: No
  Sender: FDA-Public Use
  Company Number: PHHY2012JP123783

PATIENT
  Age: 5 Year
  Sex: Male

DRUGS (4)
  1. ACZ885 [Suspect]
     Active Substance: CANAKINUMAB
     Dosage: UNK
     Route: 058
     Dates: end: 20130805
  2. ACETAMINOPHEN. [Concomitant]
     Active Substance: ACETAMINOPHEN
  3. ACZ885 [Suspect]
     Active Substance: CANAKINUMAB
     Dosage: UNK
     Dates: end: 20140224
  4. ACZ885 [Suspect]
     Active Substance: CANAKINUMAB
     Indication: CHRONIC INFANTILE NEUROLOGICAL CUTANEOUS AND ARTICULAR SYNDROME
     Dosage: 150 MG
     Route: 065
     Dates: start: 20091203, end: 20120907

REACTIONS (11)
  - Upper respiratory tract infection [Recovered/Resolved]
  - Streptococcus test positive [Recovered/Resolved]
  - Sinusitis [Recovering/Resolving]
  - Pruritus [Recovered/Resolved]
  - Conjunctivitis [Recovering/Resolving]
  - Gastroenteritis [Recovered/Resolved]
  - Rhinitis [Recovering/Resolving]
  - Diarrhoea [Recovered/Resolved]
  - Impetigo [Recovered/Resolved]
  - Dry skin [Not Recovered/Not Resolved]
  - Bronchitis [Recovering/Resolving]

NARRATIVE: CASE EVENT DATE: 20120428
